FAERS Safety Report 13104189 (Version 1)
Quarter: 2017Q1

REPORT INFORMATION
  Report Type: Spontaneous
  Country: IT (occurrence: IT)
  Receive Date: 20170111
  Receipt Date: 20170111
  Transmission Date: 20170428
  Serious: Yes (Other)
  Sender: FDA-Public Use
  Company Number: IT-TEVA-726289ACC

PATIENT
  Age: 46 Year
  Sex: Female

DRUGS (1)
  1. ALPRAZOLAM. [Suspect]
     Active Substance: ALPRAZOLAM

REACTIONS (4)
  - Asthenia [Recovering/Resolving]
  - Self-medication [Recovering/Resolving]
  - Intentional self-injury [Recovering/Resolving]
  - Somnolence [Recovering/Resolving]
